FAERS Safety Report 25117606 (Version 1)
Quarter: 2025Q1

REPORT INFORMATION
  Report Type: Report from Study
  Country: CN (occurrence: CN)
  Receive Date: 20250325
  Receipt Date: 20250325
  Transmission Date: 20250408
  Serious: Yes (Other)
  Sender: RANBAXY
  Company Number: CN-SUN PHARMACEUTICAL INDUSTRIES LTD-2025R1-500121

PATIENT
  Sex: Female

DRUGS (2)
  1. CAPECITABINE [Suspect]
     Active Substance: CAPECITABINE
     Indication: HER2 positive breast cancer
     Dosage: 1000 MILLIGRAM/SQ. METER, BID/DAYS 1 AND 14
     Route: 048
  2. PYROTINIB [Concomitant]
     Active Substance: PYROTINIB
     Indication: HER2 positive breast cancer
     Dosage: 400 MILLIGRAM, DAILY
     Route: 048

REACTIONS (1)
  - Therapy partial responder [Unknown]
